FAERS Safety Report 16763885 (Version 2)
Quarter: 2019Q3

REPORT INFORMATION
  Report Type: Spontaneous
  Country: KR (occurrence: KR)
  Receive Date: 20190902
  Receipt Date: 20190904
  Transmission Date: 20191005
  Serious: No
  Sender: FDA-Public Use
  Company Number: KR-PFIZER INC-2019372228

PATIENT
  Age: 59 Year
  Sex: Female

DRUGS (9)
  1. MYPOL [CODEINE PHOSPHATE;IBUPROFEN;PARACETAMOL] [Concomitant]
     Dosage: 1 DF, CYCLIC: THREE TIMES DAILY FOR 14 DAYS(30 MINUTES AFTER BREAKFAST, LUNCH, DINNER)
  2. XYZAL [Concomitant]
     Active Substance: LEVOCETIRIZINE DIHYDROCHLORIDE
     Dosage: 1 DF, CYCLIC: ONCE DAILY FOR 28 DAYS(30 MINUTES AFTER DINNER)
     Route: 048
  3. LYRICA [Concomitant]
     Active Substance: PREGABALIN
     Dosage: 75 MG, CYCLIC: TWICE DAILY FOR 21 DAYS(30 MINUTES AFTER BREAKFAST, DINNER)
  4. LYRICA [Concomitant]
     Active Substance: PREGABALIN
     Dosage: 75 MG, CYCLIC: TWICE DAILY FOR 28 DAYS(30 MINUTES AFTER BREAKFAST, DINNER)
  5. MYPOL [CODEINE PHOSPHATE;IBUPROFEN;PARACETAMOL] [Concomitant]
     Dosage: 1 DF, CYCLIC: THREE TIMES DAILY FOR 28 DAYS(30 MINUTES AFTER BREAKFAST, LUNCH, DINNER)
  6. ADVANTAN [Concomitant]
     Active Substance: METHYLPREDNISOLONE ACEPONATE
  7. IBRANCE [Suspect]
     Active Substance: PALBOCICLIB
     Indication: BREAST CANCER
     Dosage: 125 MG, CYCLIC: ONCE DAILY FOR CONSECUTIVE 21 DAYS VIA ORAL WITH FOOD, 7 DAYS OFF
     Route: 048
     Dates: start: 20190613
  8. LYRICA [Concomitant]
     Active Substance: PREGABALIN
     Dosage: 75 MG, CYCLIC: TWICE DAILY FOR 14 DAYS(30 MINUTES AFTER BREAKFAST, DINNER)
  9. MYPOL [CODEINE PHOSPHATE;IBUPROFEN;PARACETAMOL] [Concomitant]
     Dosage: 1 DF, CYCLIC: THREE TIMES DAILY FOR 21 DAYS(30 MINUTES AFTER BREAKFAST, LUNCH, DINNER)

REACTIONS (1)
  - No adverse event [Unknown]
